FAERS Safety Report 14326151 (Version 2)
Quarter: 2018Q1

REPORT INFORMATION
  Report Type: Spontaneous
  Country: US (occurrence: US)
  Receive Date: 20171227
  Receipt Date: 20180129
  Transmission Date: 20180509
  Serious: No
  Sender: FDA-Public Use
  Company Number: US-PFIZER INC-2017545371

PATIENT
  Age: 60 Year
  Sex: Female

DRUGS (1)
  1. EMBEDA [Suspect]
     Active Substance: MORPHINE SULFATE\NALTREXONE HYDROCHLORIDE
     Indication: PAIN
     Dosage: 20 MG, 2X/DAY (Q 12H)
     Route: 048

REACTIONS (7)
  - Vomiting [Unknown]
  - Pyrexia [Unknown]
  - Nausea [Unknown]
  - Appetite disorder [Unknown]
  - Diarrhoea [Unknown]
  - Influenza [Unknown]
  - Withdrawal syndrome [Unknown]
